FAERS Safety Report 4482390-7 (Version None)
Quarter: 2004Q4

REPORT INFORMATION
  Report Type: 
  Country: None (occurrence: None)
  Receive Date: 20041022
  Receipt Date: 20040210
  Transmission Date: 20050328
  Serious: No
  Sender: FDA-Public Use
  Company Number: US-BRISTOL-MYERS SQUIBB COMPANY-12502498

PATIENT
  Age: 39 Year
  Sex: Male
  Weight: 89 kg

DRUGS (2)
  1. BUSPAR [Suspect]
     Indication: ANXIETY
     Route: 048
     Dates: start: 20040130
  2. LAMICTAL [Concomitant]

REACTIONS (3)
  - AGITATION [None]
  - ANGER [None]
  - MOOD SWINGS [None]
